FAERS Safety Report 12482713 (Version 3)
Quarter: 2016Q3

REPORT INFORMATION
  Report Type: Report from Study
  Country: DE (occurrence: DE)
  Receive Date: 20160620
  Receipt Date: 20160817
  Transmission Date: 20161109
  Serious: Yes (Life-Threatening, Hospitalization, Other)
  Sender: FDA-Public Use
  Company Number: DE-BRISTOL-MYERS SQUIBB COMPANY-BMS-2016-046656

PATIENT
  Age: 75 Year
  Sex: Female
  Weight: 79 kg

DRUGS (11)
  1. ELOTUZUMAB. [Suspect]
     Active Substance: ELOTUZUMAB
     Dosage: 700 MG, UNK
     Route: 042
     Dates: start: 20160525
  2. LENALIDOMIDE [Suspect]
     Active Substance: LENALIDOMIDE
     Indication: PLASMA CELL MYELOMA
     Dosage: 7.5 MG, UNK
     Route: 048
     Dates: start: 20160518, end: 20160607
  3. DEXAMETHASONE. [Suspect]
     Active Substance: DEXAMETHASONE
     Indication: PLASMA CELL MYELOMA
     Dosage: 40 MG, QWK
     Route: 048
     Dates: start: 20160518
  4. VIGANTOLETTEN [Concomitant]
     Active Substance: CHOLECALCIFEROL
     Indication: PRODUCT USED FOR UNKNOWN INDICATION
     Route: 048
  5. ELOTUZUMAB. [Suspect]
     Active Substance: ELOTUZUMAB
     Indication: PLASMA CELL MYELOMA
     Dosage: 700 MG, UNK
     Route: 042
     Dates: start: 20160518
  6. MAGNESIUM VERLA                    /00648601/ [Concomitant]
     Active Substance: MAGNESIUM
     Indication: PRODUCT USED FOR UNKNOWN INDICATION
     Dosage: UNK, QD
     Route: 048
  7. BISOPROLOL [Concomitant]
     Active Substance: BISOPROLOL
     Indication: PRODUCT USED FOR UNKNOWN INDICATION
     Route: 065
  8. TOREM                              /01036501/ [Concomitant]
     Active Substance: TORSEMIDE
     Indication: PRODUCT USED FOR UNKNOWN INDICATION
     Route: 065
  9. ELOTUZUMAB. [Suspect]
     Active Substance: ELOTUZUMAB
     Dosage: 700 MG, UNK
     Route: 042
     Dates: start: 20160601
  10. DEXAMETHASONE. [Suspect]
     Active Substance: DEXAMETHASONE
     Dosage: 28 UNK, UNK
     Route: 048
  11. PANTOZOL [Concomitant]
     Active Substance: PANTOPRAZOLE SODIUM
     Indication: PRODUCT USED FOR UNKNOWN INDICATION
     Dosage: 40 MG, QD
     Route: 048

REACTIONS (3)
  - Tumour lysis syndrome [Not Recovered/Not Resolved]
  - Acute kidney injury [Not Recovered/Not Resolved]
  - Dialysis [Unknown]

NARRATIVE: CASE EVENT DATE: 201606
